FAERS Safety Report 20762615 (Version 1)
Quarter: 2022Q2

REPORT INFORMATION
  Report Type: Spontaneous
  Country: US (occurrence: None)
  Receive Date: 20220428
  Receipt Date: 20220428
  Transmission Date: 20220721
  Serious: Yes (Hospitalization)
  Sender: FDA-Public Use
  Company Number: None

PATIENT
  Sex: Male

DRUGS (2)
  1. ABIRATERONE ACETATE [Suspect]
     Active Substance: ABIRATERONE ACETATE
     Indication: Prostate cancer
     Dosage: FREQUENCY : AS DIRECTED;?TAKE 4 TABLETS BY MOUTH DAILY. TAKE AT LEAST 2 HOURS BEFORE AND 1 HOUR AFTE
     Route: 048
     Dates: start: 20220322
  2. ABIRATERONE ACETATE [Suspect]
     Active Substance: ABIRATERONE ACETATE
     Dosage: FREQUENCY : AS DIRECTED;?
     Route: 048

REACTIONS (2)
  - Therapy interrupted [None]
  - Surgery [None]
